FAERS Safety Report 5422799-8 (Version None)
Quarter: 2007Q3

REPORT INFORMATION
  Report Type: 
  Country: None (occurrence: None)
  Receive Date: 20070730
  Receipt Date: 20070419
  Transmission Date: 20080115
  Serious: Yes (Life-Threatening, Hospitalization, Other)
  Sender: FDA-Public Use
  Company Number: 200510288BWH

PATIENT
  Age: 53 Year
  Sex: Female
  Weight: 117.9352 kg

DRUGS (36)
  1. AVELOX [Suspect]
     Indication: BRONCHITIS
     Dosage: ORAL, ORAL
     Route: 048
     Dates: start: 20040719, end: 20040803
  2. AVELOX [Suspect]
     Indication: BRONCHITIS
     Dosage: ORAL, ORAL
     Route: 048
     Dates: start: 20040903
  3. WELLBUTRIN SR [Concomitant]
  4. PAXIL [Concomitant]
  5. ADVAIR DISKUS 100/50 [Concomitant]
  6. LIPITOR [Concomitant]
  7. TRICOR [Concomitant]
  8. COUMADIN [Concomitant]
  9. MIACALCIN [Concomitant]
  10. GLUCOPHAGE [Concomitant]
  11. BEXTRA [Concomitant]
  12. ACCUPRIL [Concomitant]
  13. THEOCHRON [Concomitant]
  14. SINGULAIR [Concomitant]
  15. LASIX [Concomitant]
  16. K-DUR 10 [Concomitant]
  17. PROZAC [Concomitant]
  18. TRAZODONE HYDROCHLORIDE [Concomitant]
  19. LOPID [Concomitant]
  20. FUROSEMIDE [Concomitant]
  21. PREVACID [Concomitant]
  22. CELEBREX [Concomitant]
  23. ZYRTEC [Concomitant]
  24. TRIAMCINOLONE [Concomitant]
  25. LUXIQ [Concomitant]
  26. ALBUTEROL [Concomitant]
  27. SPIRIVA [Concomitant]
  28. ALBUTEROL SULFA [Concomitant]
  29. XOPENEX [Concomitant]
  30. GLUCOTROL [Concomitant]
  31. HUMULIN N [Concomitant]
  32. ULTRACET [Concomitant]
  33. ALPRAZOLAM [Concomitant]
  34. HYDROXYZINE [Concomitant]
  35. MOBIC [Concomitant]
  36. CLOBETASOL PROPIONATE [Concomitant]

REACTIONS (25)
  - ALOPECIA [None]
  - ANAL CANDIDIASIS [None]
  - ANAPHYLACTIC REACTION [None]
  - ARTHRALGIA [None]
  - ARTHRITIS [None]
  - CANDIDIASIS [None]
  - DIZZINESS [None]
  - DYSPHAGIA [None]
  - DYSPNOEA [None]
  - FUNGAL INFECTION [None]
  - INSOMNIA [None]
  - LOSS OF CONSCIOUSNESS [None]
  - METABOLIC DISORDER [None]
  - MYALGIA [None]
  - NERVOUSNESS [None]
  - ORAL CANDIDIASIS [None]
  - PAIN [None]
  - PRURITUS [None]
  - PRURITUS GENERALISED [None]
  - RASH [None]
  - SCAB [None]
  - SKIN LESION [None]
  - THROAT TIGHTNESS [None]
  - URTICARIA [None]
  - WEIGHT DECREASED [None]
